FAERS Safety Report 4339767-X (Version None)
Quarter: 2004Q2

REPORT INFORMATION
  Report Type: 
  Country: None (occurrence: None)
  Receive Date: 20040416
  Receipt Date: 20040407
  Transmission Date: 20050107
  Serious: Yes (Hospitalization)
  Sender: FDA-Public Use
  Company Number: PHRM2004FR01475

PATIENT
  Age: 62 Year
  Sex: Male
  Weight: 74 kg

DRUGS (7)
  1. VOLTAREN [Suspect]
     Route: 048
     Dates: start: 20030920, end: 20030924
  2. ASPEGIC 325 [Concomitant]
  3. CORDARONE [Concomitant]
  4. SECTRAL [Concomitant]
  5. VASTAREL ^BIOPHARMA^ [Concomitant]
     Route: 048
  6. CALCIPARINE [Concomitant]
     Route: 058
  7. PREVISCAN [Concomitant]
     Route: 048

REACTIONS (8)
  - ALANINE AMINOTRANSFERASE INCREASED [None]
  - ASPARTATE AMINOTRANSFERASE INCREASED [None]
  - BLOOD CREATINE PHOSPHOKINASE INCREASED [None]
  - BLOOD CREATINE PHOSPHOKINASE MB [None]
  - BLOOD LACTATE DEHYDROGENASE INCREASED [None]
  - CHEST PAIN [None]
  - MYOGLOBIN BLOOD INCREASED [None]
  - RHABDOMYOLYSIS [None]
